FAERS Safety Report 9363392 (Version 1)
Quarter: 2013Q2

REPORT INFORMATION
  Report Type: Spontaneous
  Country: NO (occurrence: NO)
  Receive Date: 20130624
  Receipt Date: 20130624
  Transmission Date: 20140414
  Serious: Yes (Death)
  Sender: FDA-Public Use
  Company Number: NO-JNJFOC-20130607506

PATIENT
  Age: 69 Year
  Sex: Male

DRUGS (11)
  1. RISPERDAL [Suspect]
     Indication: PSYCHOTIC BEHAVIOUR
     Route: 048
     Dates: start: 20130417
  2. RISPERDAL [Suspect]
     Indication: PSYCHOTIC BEHAVIOUR
     Route: 048
     Dates: start: 20130507
  3. MAGNYL [Concomitant]
     Route: 048
     Dates: start: 20120312
  4. ZANIDIP [Concomitant]
     Route: 048
     Dates: start: 20130501
  5. ZANIDIP [Concomitant]
     Route: 048
     Dates: start: 20130507
  6. OMEGA-3 TRIGLYCERIDES [Concomitant]
     Route: 048
     Dates: start: 20120313
  7. IMOVANE [Concomitant]
     Indication: INSOMNIA
     Dosage: AS REQUIRED
     Route: 048
     Dates: start: 20120312
  8. HEMINEVRIN [Concomitant]
     Indication: PSYCHOTIC BEHAVIOUR
     Dosage: UP TO 3 DOSES OF 300 MGM WHEN NECESSARY
     Route: 048
     Dates: start: 20130413
  9. SOBRIL [Concomitant]
     Indication: PSYCHOTIC BEHAVIOUR
     Dosage: WHEN NECESSARY: 10-15 MG UP TO 3 DOSES
     Route: 048
     Dates: start: 20130413
  10. VITAMINERAL [Concomitant]
     Route: 048
     Dates: start: 20120312
  11. CENTYL MED KALIUMKLORID [Concomitant]
     Route: 048
     Dates: start: 20121229

REACTIONS (1)
  - Sudden death [Fatal]
